FAERS Safety Report 9581063 (Version 1)
Quarter: 2013Q3

REPORT INFORMATION
  Report Type: Spontaneous
  Country: US (occurrence: None)
  Receive Date: 20130916
  Receipt Date: 20130916
  Transmission Date: 20140515
  Serious: Yes (Other)
  Sender: FDA-Public Use
  Company Number: JPI-P-026048

PATIENT
  Age: 44 Year
  Sex: Female
  Weight: 80.29 kg

DRUGS (16)
  1. XYREM [Suspect]
     Indication: INSOMNIA
     Dosage: 6 GM (3 GM, 2 IN 1 D), ORAL
     Route: 048
     Dates: start: 20110708, end: 2011
  2. OXCARBAZEPINE [Suspect]
     Indication: PRODUCT USED FOR UNKNOWN INDICATION
  3. TOPIRAMATE [Suspect]
     Indication: PRODUCT USED FOR UNKNOWN INDICATION
     Dosage: 25 MG (25 MG, 7:00 PM), ORAL
     Route: 048
  4. CLONAZEPAM [Concomitant]
  5. FLUOXETINE H CL [Concomitant]
  6. IRON [Concomitant]
  7. CLONAZEPAM [Concomitant]
  8. ATORVASTATIN CALCIUM [Concomitant]
  9. RIZATRIPTAN BENZOATE [Concomitant]
  10. OLOPATADINE HYDROCHLORIDE [Concomitant]
  11. PROMETHAZINE [Concomitant]
  12. PANTOPRAZOLE [Concomitant]
  13. RISPERIDONE [Concomitant]
  14. FENOFIBRATE [Concomitant]
  15. VITAMIN D [Concomitant]
  16. ESTRADIOL [Concomitant]

REACTIONS (12)
  - Weight decreased [None]
  - Sleep apnoea syndrome [None]
  - Snoring [None]
  - Lip injury [None]
  - Lip haemorrhage [None]
  - Excoriation [None]
  - Drug ineffective for unapproved indication [None]
  - Fall [None]
  - Vomiting [None]
  - Fatigue [None]
  - Sleep-related eating disorder [None]
  - Nausea [None]
